FAERS Safety Report 17137365 (Version 1)
Quarter: 2019Q4

REPORT INFORMATION
  Report Type: Spontaneous
  Country: GB (occurrence: GB)
  Receive Date: 20191210
  Receipt Date: 20191210
  Transmission Date: 20200122
  Serious: Yes (Hospitalization)
  Sender: FDA-Public Use
  Company Number: GB-CELLTRION INC.-2019GB026897

PATIENT

DRUGS (2)
  1. RITUXIMAB (UNKNOWN) [Suspect]
     Active Substance: RITUXIMAB
     Indication: MYASTHENIA GRAVIS
     Dosage: SECOND DOSE
     Route: 065
  2. RITUXIMAB (UNKNOWN) [Suspect]
     Active Substance: RITUXIMAB
     Dosage: AFTER 11 DAYS AS SLOW INFUSION (4 WEEKS COURSE)
     Route: 041

REACTIONS (4)
  - Hypersensitivity [Recovering/Resolving]
  - Type III immune complex mediated reaction [Recovering/Resolving]
  - Product use in unapproved indication [Unknown]
  - Anterior interosseous syndrome [Recovering/Resolving]
